FAERS Safety Report 6987194-9 (Version None)
Quarter: 2010Q3

REPORT INFORMATION
  Report Type: 
  Country: None (occurrence: None)
  Receive Date: 20100916
  Receipt Date: 20100908
  Transmission Date: 20110219
  Serious: Yes (Hospitalization, Other)
  Sender: FDA-Public Use
  Company Number: CHPA2010US14486

PATIENT
  Age: 92 Year
  Sex: Female

DRUGS (2)
  1. VOLTAREN [Suspect]
     Indication: PAIN
     Dosage: UNK, UNK
     Route: 061
  2. DRUG THERAPY NOS [Concomitant]

REACTIONS (8)
  - CARDIAC FAILURE CONGESTIVE [None]
  - CYSTITIS [None]
  - DRUG ADMINISTERED AT INAPPROPRIATE SITE [None]
  - ELECTROLYTE IMBALANCE [None]
  - KIDNEY INFECTION [None]
  - OFF LABEL USE [None]
  - PNEUMONIA [None]
  - THERAPEUTIC RESPONSE UNEXPECTED [None]
